FAERS Safety Report 4676633-4 (Version None)
Quarter: 2005Q2

REPORT INFORMATION
  Report Type: 
  Country: None (occurrence: None)
  Receive Date: 20050526
  Receipt Date: 20050513
  Transmission Date: 20051028
  Serious: Yes (Other)
  Sender: FDA-Public Use
  Company Number: 2005066433

PATIENT
  Age: 53 Year
  Sex: Female

DRUGS (4)
  1. MEDROXYPROGESTERONE ACETATE [Suspect]
     Indication: HORMONE REPLACEMENT THERAPY
     Dosage: 5 MG DAILY  SINCE 3 YEARS
  2. CONJUGATED ESTROGENS [Concomitant]
  3. AMLODIPINE BESILATE                     (AMLODIPINE) [Concomitant]
  4. AMOSULALOL  HYDROCHLORIDE                (AMOSULALOL HYDROCHLORIDE) [Concomitant]

REACTIONS (1)
  - UTERINE LEIOMYOMA [None]
